FAERS Safety Report 5288348-2 (Version None)
Quarter: 2007Q2

REPORT INFORMATION
  Report Type: 
  Country: None (occurrence: None)
  Receive Date: 20070405
  Receipt Date: 20070328
  Transmission Date: 20071010
  Serious: Yes (Other)
  Sender: FDA-Public Use
  Company Number: IT-BRISTOL-MYERS SQUIBB COMPANY-13730601

PATIENT
  Age: 38 Year
  Sex: Female

DRUGS (6)
  1. STAVUDINE [Suspect]
  2. LAMIVUDINE [Suspect]
  3. LOPINAVIR [Suspect]
  4. RITONAVIR [Suspect]
  5. FLUCONAZOLE [Concomitant]
  6. ATOVAQUONE [Concomitant]

REACTIONS (7)
  - BONE MARROW FAILURE [None]
  - BONE MARROW TOXICITY [None]
  - HEPATIC FAILURE [None]
  - HEPATOTOXICITY [None]
  - PLATELET COUNT DECREASED [None]
  - RENAL FAILURE [None]
  - STEVENS-JOHNSON SYNDROME [None]
